FAERS Safety Report 5016376-0 (Version None)
Quarter: 2006Q2

REPORT INFORMATION
  Report Type: 
  Country: None (occurrence: None)
  Receive Date: 20060420
  Receipt Date: 20060207
  Transmission Date: 20061013
  Serious: Yes (Other)
  Sender: FDA-Public Use
  Company Number: 2006022595

PATIENT
  Age: 56 Year
  Sex: Male
  Weight: 81.6475 kg

DRUGS (12)
  1. SOMAVERT [Suspect]
     Indication: ACROMEGALY
     Dosage: 10 MG (10 MG,QD)
     Dates: start: 20050101
  2. LOTREL [Concomitant]
  3. BENICAR [Concomitant]
  4. HYDROCHLOROTHIAZIDE [Concomitant]
  5. AMBIEN [Concomitant]
  6. COLCHICUM JTL LIQ [Concomitant]
  7. NEURONTIN [Concomitant]
  8. ZESTRIL [Concomitant]
  9. OPIOIDS (OPIOIDS) [Concomitant]
  10. DOSTINEX [Concomitant]
  11. BACTROBAN (MUPIROCIN) [Concomitant]
  12. PHENERGAN VC (PHENYLEPHRINE HYDROCHLORIDE, PROMETHAZINE HYDROCHLORIDE) [Concomitant]

REACTIONS (8)
  - CONDITION AGGRAVATED [None]
  - HYPOAESTHESIA [None]
  - MILIA [None]
  - NAUSEA [None]
  - NERVE INJURY [None]
  - NEUROPATHY PERIPHERAL [None]
  - PERIPHERAL COLDNESS [None]
  - SLEEP APNOEA SYNDROME [None]
